FAERS Safety Report 23351907 (Version 2)
Quarter: 2024Q1

REPORT INFORMATION
  Report Type: Spontaneous
  Country: CO (occurrence: CO)
  Receive Date: 20231229
  Receipt Date: 20240226
  Transmission Date: 20240409
  Serious: Yes (Other)
  Sender: FDA-Public Use
  Company Number: CO-SA-SAC20230711000562

PATIENT
  Age: 61 Year
  Sex: Female
  Weight: 55 kg

DRUGS (8)
  1. DUPILUMAB [Suspect]
     Active Substance: DUPILUMAB
     Indication: Asthma
     Dosage: 300 MG, QOW
     Route: 058
     Dates: start: 20230414, end: 20230929
  2. DUPILUMAB [Suspect]
     Active Substance: DUPILUMAB
     Indication: Nasal polyps
  3. DUPILUMAB [Suspect]
     Active Substance: DUPILUMAB
     Indication: Dermatitis atopic
  4. SPIRIVA [Concomitant]
     Active Substance: TIOTROPIUM BROMIDE MONOHYDRATE
     Route: 055
  5. NASONEX [Concomitant]
     Active Substance: MOMETASONE FUROATE
  6. FLUTICASONE FUROATE\VILANTEROL TRIFENATATE [Concomitant]
     Active Substance: FLUTICASONE FUROATE\VILANTEROL TRIFENATATE
  7. ATORVASTATIN\EZETIMIBE [Concomitant]
     Active Substance: ATORVASTATIN\EZETIMIBE
     Indication: Dyslipidaemia
     Dosage: 1 DF, QD
  8. BILASTIN [Concomitant]
     Indication: Dyslipidaemia
     Dosage: 1 DF, QD

REACTIONS (7)
  - Rheumatoid arthritis [Recovering/Resolving]
  - Arthralgia [Recovering/Resolving]
  - Musculoskeletal discomfort [Recovering/Resolving]
  - Peripheral swelling [Recovering/Resolving]
  - Joint range of motion decreased [Recovering/Resolving]
  - Overweight [Recovered/Resolved]
  - Hypoaesthesia [Recovering/Resolving]

NARRATIVE: CASE EVENT DATE: 20230101
